FAERS Safety Report 5057775-0 (Version None)
Quarter: 2006Q3

REPORT INFORMATION
  Report Type: 
  Country: None (occurrence: None)
  Receive Date: 20060721
  Receipt Date: 20060213
  Transmission Date: 20061208
  Serious: No
  Sender: FDA-Public Use
  Company Number: US-GLAXOSMITHKLINE-A0593482A

PATIENT
  Age: 60 Year
  Sex: Male

DRUGS (9)
  1. AVANDIA [Suspect]
     Dosage: 4MG TWICE PER DAY
     Route: 048
     Dates: start: 20060101
  2. METFORMIN [Suspect]
     Route: 048
     Dates: start: 20060101
  3. GLIPIZIDE [Concomitant]
  4. PRAVACHOL [Concomitant]
  5. LOTREL [Concomitant]
  6. FOLIC ACID [Concomitant]
  7. PLAVIX [Concomitant]
  8. BRIMONIDINE TARTRATE [Concomitant]
  9. CITRUCEL [Concomitant]

REACTIONS (1)
  - DYSGEUSIA [None]
